FAERS Safety Report 14702573 (Version 1)
Quarter: 2018Q2

REPORT INFORMATION
  Report Type: Report from Study
  Country: JP (occurrence: JP)
  Receive Date: 20180401
  Receipt Date: 20180401
  Transmission Date: 20180711
  Serious: Yes (Other)
  Sender: FDA-Public Use
  Company Number: JP-ROCHE-1306346

PATIENT

DRUGS (4)
  1. BEVACIZUMAB. [Suspect]
     Active Substance: BEVACIZUMAB
     Dosage: AS MAINTENANCE
     Route: 065
  2. BEVACIZUMAB. [Suspect]
     Active Substance: BEVACIZUMAB
     Indication: NON-SMALL CELL LUNG CANCER
     Dosage: THE PATIENTS RECEIVED 4 CYCLES
     Route: 065
  3. DOCETAXEL. [Suspect]
     Active Substance: DOCETAXEL
     Indication: NON-SMALL CELL LUNG CANCER
     Dosage: THE PATIENTS RECEIVED 4 CYCLES
     Route: 065
  4. CISPLATIN. [Suspect]
     Active Substance: CISPLATIN
     Indication: NON-SMALL CELL LUNG CANCER
     Dosage: THE PATIENTS RECEIVED 4 CYCLES
     Route: 065

REACTIONS (9)
  - Leukopenia [Unknown]
  - Nausea [Unknown]
  - Neutropenia [Unknown]
  - Anaemia [Unknown]
  - Pyrexia [Unknown]
  - Febrile neutropenia [Unknown]
  - Hypertension [Unknown]
  - Alanine aminotransferase increased [Unknown]
  - Decreased appetite [Unknown]
